FAERS Safety Report 5114671-8 (Version None)
Quarter: 2006Q3

REPORT INFORMATION
  Report Type: 
  Country: None (occurrence: None)
  Receive Date: 20060926
  Receipt Date: 20060914
  Transmission Date: 20061208
  Serious: Yes (Death, Other)
  Sender: FDA-Public Use
  Company Number: US-JNJFOC-20030906511

PATIENT
  Sex: Female

DRUGS (14)
  1. REMICADE [Suspect]
     Indication: RHEUMATOID ARTHRITIS
     Route: 042
     Dates: start: 20001011, end: 20011127
  2. ATACAND [Concomitant]
  3. DEMADEX [Concomitant]
  4. LO-TROL [Concomitant]
  5. CLONIDINE [Concomitant]
  6. PAXIL [Concomitant]
  7. PREDNISONE TAB [Concomitant]
  8. METHOTREXATE [Concomitant]
  9. OXYCONTIN [Concomitant]
  10. METOCLOPRAMIDE [Concomitant]
  11. PRILOSEC [Concomitant]
  12. PREMARIN [Concomitant]
  13. DITROPAN [Concomitant]
  14. FOLIC ACID [Concomitant]

REACTIONS (2)
  - PNEUMONIA [None]
  - RESPIRATORY FAILURE [None]
